FAERS Safety Report 11270904 (Version 1)
Quarter: 2015Q3

REPORT INFORMATION
  Report Type: Spontaneous
  Country: JP (occurrence: JP)
  Receive Date: 20150714
  Receipt Date: 20150714
  Transmission Date: 20151125
  Serious: Yes (Hospitalization, Other)
  Sender: FDA-Public Use
  Company Number: JP-PFIZER INC-2015191234

PATIENT
  Age: 67 Year
  Sex: Male
  Weight: 60 kg

DRUGS (4)
  1. ELIQUIS [Suspect]
     Active Substance: APIXABAN
     Indication: CEREBROVASCULAR ACCIDENT PROPHYLAXIS
     Dosage: 5 MG, 1X/DAY
     Route: 048
     Dates: start: 20150126, end: 20150530
  2. MICARDIS [Suspect]
     Active Substance: TELMISARTAN
     Dosage: 40 MG, 1X/DAY
     Route: 048
     Dates: start: 20080305
  3. NORPACE [Concomitant]
     Active Substance: DISOPYRAMIDE PHOSPHATE
     Dosage: 100 MG, 2X/DAY
     Route: 048
     Dates: start: 20081105
  4. AMLODIPINE BESILATE [Suspect]
     Active Substance: AMLODIPINE BESYLATE
     Indication: HYPERTENSION
     Dosage: 5 MG, 1X/DAY
     Route: 048
     Dates: start: 20080216

REACTIONS (3)
  - Off label use [Unknown]
  - Cerebellar haemorrhage [Unknown]
  - Surgery [Unknown]

NARRATIVE: CASE EVENT DATE: 20150530
